FAERS Safety Report 7469917-8 (Version None)
Quarter: 2011Q2

REPORT INFORMATION
  Report Type: 
  Country: None (occurrence: None)
  Receive Date: 20110420
  Receipt Date: 20110420
  Transmission Date: 20111010
  Serious: Yes (Other)
  Sender: FDA-Public Use
  Company Number: GER/UKI/11/0018061

PATIENT
  Age: 27 Year
  Sex: Female

DRUGS (7)
  1. ZONISAMIDE [Suspect]
     Indication: CONVULSION
     Dosage: 100 MG, 2 IN 1 D
  2. TIAGABINE HCL [Suspect]
     Indication: CONVULSION
  3. LEVETIRACETAM [Suspect]
     Indication: CONVULSION
  4. LAMOTRIGINE [Suspect]
     Indication: CONVULSION
     Dosage: 200 MG
  5. PHENYTON SODIUM 1GR CAP [Suspect]
     Indication: CONVULSION
  6. TOPIRAMATE [Suspect]
     Indication: CONVULSION
     Dosage: ORAL
     Route: 048
  7. CARBAMAZEPINE [Suspect]
     Indication: CONVULSION

REACTIONS (4)
  - EPILEPSY [None]
  - ENCEPHALOCELE [None]
  - DRUG INEFFECTIVE [None]
  - BRAIN HERNIATION [None]
